FAERS Safety Report 5698963-X (Version None)
Quarter: 2008Q2

REPORT INFORMATION
  Report Type: 
  Country: None (occurrence: None)
  Receive Date: 20080408
  Receipt Date: 20060918
  Transmission Date: 20081010
  Serious: Yes (Other)
  Sender: FDA-Public Use
  Company Number: US-BAYER-US-2006-026866

PATIENT
  Age: 29 Year
  Weight: 90 kg

DRUGS (3)
  1. ULTRAVIST (PHARMACY BULK) [Suspect]
     Indication: COMPUTERISED TOMOGRAM ABDOMEN
     Dosage: UNIT DOSE: 120 ML
     Route: 042
     Dates: start: 20060913, end: 20060913
  2. READI-CAT [Concomitant]
     Route: 048
     Dates: start: 20060913, end: 20060913
  3. OMEPRAZOLE [Concomitant]
     Dosage: UNIT DOSE: 20 MG

REACTIONS (4)
  - PHARYNGOLARYNGEAL DISCOMFORT [None]
  - PRURITUS [None]
  - THROAT TIGHTNESS [None]
  - URTICARIA [None]
